FAERS Safety Report 12457475 (Version 1)
Quarter: 2016Q2

REPORT INFORMATION
  Report Type: Report from Study
  Country: BR (occurrence: BR)
  Receive Date: 20160610
  Receipt Date: 20160610
  Transmission Date: 20160815
  Serious: Yes (Other)
  Sender: FDA-Public Use
  Company Number: BR-ABBVIE-16K-020-1576760-00

PATIENT
  Age: 38 Year
  Sex: Male
  Weight: 57 kg

DRUGS (1)
  1. HUMIRA [Suspect]
     Active Substance: ADALIMUMAB
     Indication: PSORIATIC ARTHROPATHY
     Route: 058
     Dates: start: 20151201, end: 20160118

REACTIONS (7)
  - Weight decreased [Recovering/Resolving]
  - Wheezing [Recovering/Resolving]
  - Abdominal pain [Recovering/Resolving]
  - Pneumonia [Unknown]
  - Spleen disorder [Unknown]
  - Tuberculosis [Unknown]
  - Hypophagia [Recovering/Resolving]

NARRATIVE: CASE EVENT DATE: 20151230
